FAERS Safety Report 5166967-1 (Version None)
Quarter: 2006Q4

REPORT INFORMATION
  Report Type: 
  Country: None (occurrence: None)
  Receive Date: 20061207
  Receipt Date: 20061205
  Transmission Date: 20070319
  Serious: Yes (Life-Threatening)
  Sender: FDA-Public Use
  Company Number: 2006CG01989

PATIENT
  Age: 67 Year
  Sex: Female
  Weight: 50 kg

DRUGS (6)
  1. DIPRIVAN [Suspect]
     Indication: GENERAL ANAESTHESIA
     Route: 042
     Dates: start: 20061108, end: 20061108
  2. BETADINE [Suspect]
     Route: 061
     Dates: start: 20061108
  3. BLEU PATENTE V GUERBET [Suspect]
     Route: 058
     Dates: start: 20061108
  4. SUFENTA [Suspect]
     Route: 042
     Dates: start: 20061108, end: 20061108
  5. ACETAMINOPHEN [Suspect]
     Route: 042
     Dates: start: 20061108, end: 20061108
  6. SEVORANE [Suspect]
     Route: 055
     Dates: start: 20061108, end: 20061108

REACTIONS (1)
  - ANAPHYLACTIC SHOCK [None]
